FAERS Safety Report 8964531 (Version 2)
Quarter: 2012Q4

REPORT INFORMATION
  Report Type: 
  Country: DE (occurrence: DE)
  Receive Date: 20121214
  Receipt Date: 20121224
  Transmission Date: 20130627
  Serious: Yes (Other)
  Sender: FDA-Public Use
  Company Number: DE-ELI_LILLY_AND_COMPANY-DE201212000677

PATIENT
  Sex: Female

DRUGS (5)
  1. CYMBALTA [Suspect]
     Indication: DEPRESSION
     Dosage: 30 mg, UNK
     Route: 048
  2. CYMBALTA [Suspect]
     Dosage: 60 mg, UNK
  3. L-THYROXIN [Concomitant]
  4. DIOVAN [Concomitant]
  5. AMISULPRIDE [Concomitant]

REACTIONS (6)
  - Hepatic enzyme increased [Unknown]
  - Gamma-glutamyltransferase increased [Unknown]
  - Inflammatory marker increased [Unknown]
  - Pyrexia [Unknown]
  - Paraesthesia [Unknown]
  - Drug withdrawal syndrome [Unknown]
